FAERS Safety Report 5874116-7 (Version None)
Quarter: 2008Q3

REPORT INFORMATION
  Report Type: 
  Country: None (occurrence: None)
  Receive Date: 20080829
  Receipt Date: 20080401
  Transmission Date: 20090109
  Serious: Yes (Other)
  Sender: FDA-Public Use
  Company Number: 2008S1011867

PATIENT
  Sex: Male

DRUGS (9)
  1. CLARITHROMYCIN [Suspect]
     Dosage: 500 MG;TWICE A DAY
  2. AZATHIOPRINE [Concomitant]
  3. CALCIUM GLUBIONATE (CALCIUM GLUBIONATE) [Concomitant]
  4. FUROSEMIDE [Concomitant]
  5. HUMAN MIXTARD /00030505/ (INSULIN INJECTION, BIPHASIC) [Concomitant]
  6. PREDNISONE [Concomitant]
  7. RAMPRIL (RAMIPRIL) [Concomitant]
  8. SIMVASTATIN [Concomitant]
  9. TIMOLOL MALEATE [Concomitant]

REACTIONS (2)
  - DEAFNESS [None]
  - LOWER RESPIRATORY TRACT INFECTION [None]
